FAERS Safety Report 5242028-8 (Version None)
Quarter: 2007Q1

REPORT INFORMATION
  Report Type: 
  Country: None (occurrence: None)
  Receive Date: 20070220
  Receipt Date: 20070205
  Transmission Date: 20070707
  Serious: Yes (Other)
  Sender: FDA-Public Use
  Company Number: FR-PFIZER INC-2006117291

PATIENT
  Sex: Female
  Weight: 62 kg

DRUGS (8)
  1. CAMPTOSAR [Suspect]
     Indication: COLON CANCER
     Route: 042
  2. AVASTIN [Concomitant]
     Indication: COLORECTAL CANCER
     Route: 042
  3. FLUOROURACIL [Concomitant]
     Indication: COLORECTAL CANCER
     Route: 042
     Dates: start: 20060614
  4. CALCIUM FOLINATE [Concomitant]
     Indication: COLORECTAL CANCER
  5. SOLU-MEDROL [Concomitant]
     Dosage: DAILY DOSE:120MG
     Route: 042
  6. TRANXENE [Concomitant]
     Dosage: DAILY DOSE:40MG
     Route: 042
  7. CALCIUM [Concomitant]
     Route: 042
  8. ZOFRAN [Concomitant]
     Dosage: DAILY DOSE:32MG
     Route: 042

REACTIONS (3)
  - ARTHRALGIA [None]
  - MUSCLE SPASMS [None]
  - NEUROPATHY PERIPHERAL [None]
